FAERS Safety Report 12938837 (Version 1)
Quarter: 2016Q4

REPORT INFORMATION
  Report Type: Spontaneous
  Country: US (occurrence: US)
  Receive Date: 20161115
  Receipt Date: 20161115
  Transmission Date: 20170207
  Serious: Yes (Death, Other)
  Sender: FDA-Public Use
  Company Number: US-BRISTOL-MYERS SQUIBB COMPANY-BMS-2016-095141

PATIENT
  Sex: Male
  Weight: 89.34 kg

DRUGS (1)
  1. OPDIVO [Suspect]
     Active Substance: NIVOLUMAB
     Indication: HEPATOCELLULAR CARCINOMA
     Dosage: 283 MG, 2 TIMES/WK
     Route: 065
     Dates: start: 20160628, end: 20161012

REACTIONS (2)
  - Product used for unknown indication [Unknown]
  - Death [Fatal]
